FAERS Safety Report 24151156 (Version 1)
Quarter: 2024Q3

REPORT INFORMATION
  Report Type: Spontaneous
  Country: UA (occurrence: UA)
  Receive Date: 20240730
  Receipt Date: 20240730
  Transmission Date: 20241017
  Serious: Yes (Death, Hospitalization, Other)
  Sender: RANBAXY
  Company Number: UA-SUN PHARMACEUTICAL INDUSTRIES LTD-2024R1-459222

PATIENT
  Age: 21 Month
  Sex: Female

DRUGS (12)
  1. NITROGLYCERIN [Suspect]
     Active Substance: NITROGLYCERIN
     Indication: Acute myocardial infarction
     Dosage: UNK
     Route: 065
  2. ENALAPRIL [Suspect]
     Active Substance: ENALAPRIL
     Indication: Immunodeficiency
     Dosage: UNK
     Route: 065
  3. MORPHINE [Suspect]
     Active Substance: MORPHINE
     Indication: Acute myocardial infarction
     Dosage: UNK
     Route: 065
  4. SPIRONOLACTONE [Suspect]
     Active Substance: SPIRONOLACTONE
     Indication: Immunodeficiency
     Dosage: UNK
     Route: 065
  5. EPLERENONE [Suspect]
     Active Substance: EPLERENONE
     Indication: Iron deficiency anaemia
     Dosage: UNK
     Route: 065
  6. FUROSEMIDE [Suspect]
     Active Substance: FUROSEMIDE
     Indication: Iron deficiency anaemia
     Dosage: UNK
     Route: 065
  7. TORSEMIDE [Suspect]
     Active Substance: TORSEMIDE
     Indication: Iron deficiency anaemia
     Dosage: UNK
     Route: 065
  8. METOPROLOL [Suspect]
     Active Substance: METOPROLOL
     Indication: Iron deficiency anaemia
     Dosage: UNK
     Route: 065
  9. MAGNESIUM ASPARTATE\POTASSIUM ASPARTATE [Suspect]
     Active Substance: MAGNESIUM ASPARTATE\POTASSIUM ASPARTATE
     Indication: Iron deficiency anaemia
     Dosage: UNK
     Route: 065
  10. VITAMINS [Suspect]
     Active Substance: VITAMINS
     Indication: Iron deficiency anaemia
     Dosage: UNK
     Route: 065
  11. TRIMETAZIDINE [Suspect]
     Active Substance: TRIMETAZIDINE
     Indication: Immunodeficiency
     Dosage: UNK
     Route: 065
  12. ASPIRIN [Suspect]
     Active Substance: ASPIRIN
     Indication: Immunodeficiency
     Dosage: UNK
     Route: 065

REACTIONS (5)
  - Therapeutic response decreased [Unknown]
  - Condition aggravated [Fatal]
  - Death [Fatal]
  - Myocardial ischaemia [Unknown]
  - Tachycardia [Unknown]
